FAERS Safety Report 21609740 (Version 2)
Quarter: 2022Q4

REPORT INFORMATION
  Report Type: Spontaneous
  Country: ES (occurrence: ES)
  Receive Date: 20221117
  Receipt Date: 20221122
  Transmission Date: 20230113
  Serious: Yes (Other)
  Sender: FDA-Public Use
  Company Number: ES-PFIZER INC-202201177484

PATIENT
  Sex: Female

DRUGS (5)
  1. VIGABATRIN [Suspect]
     Active Substance: VIGABATRIN
     Indication: Epileptic encephalopathy
     Dosage: 140 MG/KG, DAILY
     Route: 065
  2. CLONAZEPAM [Concomitant]
     Active Substance: CLONAZEPAM
     Indication: Epileptic encephalopathy
     Dosage: 0.04 MG/KG, DAY AT NIGHT
     Route: 065
  3. OXCARBAZEPINE [Concomitant]
     Active Substance: OXCARBAZEPINE
     Indication: Epileptic encephalopathy
     Dosage: 20 MG/KG, DAILY
     Route: 065
  4. TOPIRAMATE [Concomitant]
     Active Substance: TOPIRAMATE
     Indication: Epileptic encephalopathy
     Dosage: UNK
     Route: 065
  5. ZONISAMIDE [Concomitant]
     Active Substance: ZONISAMIDE
     Indication: Epileptic encephalopathy
     Dosage: 100 MG, 2X/DAY
     Route: 065

REACTIONS (1)
  - Magnetic resonance imaging head abnormal [Unknown]
